FAERS Safety Report 5568180-2 (Version None)
Quarter: 2007Q4

REPORT INFORMATION
  Report Type: 
  Country: None (occurrence: None)
  Receive Date: 20071218
  Receipt Date: 20071218
  Transmission Date: 20080405
  Serious: No
  Sender: FDA-Public Use
  Company Number: None

PATIENT
  Age: 62 Year
  Sex: Male

DRUGS (1)
  1. VARENICLINE [Suspect]
     Indication: SMOKING CESSATION THERAPY
     Dosage: 150MG BID PO
     Route: 048
     Dates: start: 20071009, end: 20071009

REACTIONS (3)
  - ABDOMINAL PAIN [None]
  - INSOMNIA [None]
  - STOMACH DISCOMFORT [None]
